FAERS Safety Report 9181353 (Version 5)
Quarter: 2014Q1

REPORT INFORMATION
  Report Type: Spontaneous
  Country: US (occurrence: US)
  Receive Date: 20130322
  Receipt Date: 20140130
  Transmission Date: 20141002
  Serious: Yes (Hospitalization, Other)
  Sender: FDA-Public Use
  Company Number: US-009507513-1303USA008910

PATIENT
  Sex: Female
  Weight: 115.19 kg

DRUGS (6)
  1. NUVARING [Suspect]
     Indication: CONTRACEPTION
     Dosage: 3 WEEKS IN, OUT 1 WEEK
     Route: 067
     Dates: start: 20091105, end: 20100407
  2. NUVARING [Suspect]
     Dosage: 3 WEEKS IN, OUT 1 WEEK
     Route: 067
     Dates: start: 20100304, end: 20100407
  3. OMEPRAZOLE [Concomitant]
     Indication: PRODUCT USED FOR UNKNOWN INDICATION
     Dosage: 40 MG, QD
     Route: 048
  4. IBUPROFEN [Concomitant]
     Indication: PRODUCT USED FOR UNKNOWN INDICATION
  5. STRATTERA [Concomitant]
     Indication: PRODUCT USED FOR UNKNOWN INDICATION
     Dosage: 40 MG, QD
     Route: 048
  6. NEURONTIN [Concomitant]
     Indication: PRODUCT USED FOR UNKNOWN INDICATION
     Dosage: 300 MG, TID
     Route: 048

REACTIONS (13)
  - Pulmonary embolism [Recovered/Resolved]
  - Deep vein thrombosis [Not Recovered/Not Resolved]
  - Anxiety [Unknown]
  - Foreign body [Unknown]
  - Thymus enlargement [Unknown]
  - Menstrual disorder [Unknown]
  - Menstruation irregular [Unknown]
  - Weight increased [Unknown]
  - Abdominal pain [Unknown]
  - Menorrhagia [Unknown]
  - Diarrhoea [Unknown]
  - Acne [Unknown]
  - Hair growth abnormal [Unknown]
